FAERS Safety Report 9321552 (Version 1)
Quarter: 2013Q2

REPORT INFORMATION
  Report Type: Spontaneous
  Country: GB (occurrence: GB)
  Receive Date: 20130531
  Receipt Date: 20130531
  Transmission Date: 20140414
  Serious: Yes (Other)
  Sender: FDA-Public Use
  Company Number: GB-ELI_LILLY_AND_COMPANY-GB201305006525

PATIENT
  Sex: Female

DRUGS (1)
  1. FORSTEO [Suspect]

REACTIONS (1)
  - Rectal haemorrhage [Unknown]
